FAERS Safety Report 24805532 (Version 1)
Quarter: 2025Q1

REPORT INFORMATION
  Report Type: Spontaneous
  Country: FR (occurrence: FR)
  Receive Date: 20250103
  Receipt Date: 20250103
  Transmission Date: 20250408
  Serious: Yes (Life-Threatening, Hospitalization, Other)
  Sender: SK LIFE SCIENCE
  Company Number: FR-SK LIFE SCIENCE, INC-SKPVG-2024-003025

PATIENT

DRUGS (7)
  1. XCOPRI [Suspect]
     Active Substance: CENOBAMATE
     Indication: Seizure
     Route: 065
  2. XCOPRI [Suspect]
     Active Substance: CENOBAMATE
     Dosage: 100 MILLIGRAM, QD
     Route: 065
  3. XCOPRI [Suspect]
     Active Substance: CENOBAMATE
     Route: 065
  4. PERAMPANEL [Suspect]
     Active Substance: PERAMPANEL
     Indication: Seizure
     Dosage: 8 MILLIGRAM, QD
     Route: 065
  5. PERAMPANEL [Suspect]
     Active Substance: PERAMPANEL
     Route: 065
  6. CARBAMAZEPINE [Suspect]
     Active Substance: CARBAMAZEPINE
     Indication: Seizure
     Dosage: 400 MILLIGRAM, QD, EXTENDED RELEASE
     Route: 065
  7. CARBAMAZEPINE [Suspect]
     Active Substance: CARBAMAZEPINE
     Route: 065

REACTIONS (8)
  - Toxicity to various agents [Recovering/Resolving]
  - Seizure [Recovered/Resolved]
  - Coma [Recovered/Resolved]
  - Encephalopathy [Recovering/Resolving]
  - Mydriasis [Recovered/Resolved]
  - Bradycardia [Recovered/Resolved]
  - Suicide attempt [Recovering/Resolving]
  - Laryngeal oedema [Unknown]
